FAERS Safety Report 22521626 (Version 1)
Quarter: 2023Q2

REPORT INFORMATION
  Report Type: Spontaneous
  Country: BE (occurrence: BE)
  Receive Date: 20230605
  Receipt Date: 20230605
  Transmission Date: 20230722
  Serious: Yes (Hospitalization)
  Sender: FDA-Public Use
  Company Number: BE-LEO Pharma-351157

PATIENT
  Age: 38 Year
  Sex: Male

DRUGS (5)
  1. BRODALUMAB [Suspect]
     Active Substance: BRODALUMAB
     Indication: Psoriasis
     Route: 058
     Dates: start: 20210302
  2. NEOTIGASON [Concomitant]
     Active Substance: ACITRETIN
     Indication: Psoriasis
  3. METHOTREXATE [Concomitant]
     Active Substance: METHOTREXATE
     Indication: Product used for unknown indication
     Dates: start: 201908, end: 202003
  4. NEORAL [Concomitant]
     Active Substance: CYCLOSPORINE
     Indication: Psoriasis
     Dates: start: 202003
  5. ENSTILAR [Concomitant]
     Active Substance: BETAMETHASONE DIPROPIONATE\CALCIPOTRIENE HYDRATE
     Indication: Psoriasis
     Dates: start: 202003, end: 202103

REACTIONS (4)
  - Pancreatic carcinoma [Unknown]
  - Hepatitis [Unknown]
  - Reflux gastritis [Unknown]
  - Therapy cessation [Unknown]

NARRATIVE: CASE EVENT DATE: 20230201
